FAERS Safety Report 4355474-1 (Version None)
Quarter: 2004Q2

REPORT INFORMATION
  Report Type: 
  Country: None (occurrence: None)
  Receive Date: 20040505
  Receipt Date: 20040112
  Transmission Date: 20050107
  Serious: Yes (Other)
  Sender: FDA-Public Use
  Company Number: 10046904-NA02-1

PATIENT
  Age: 74 Year
  Sex: Female
  Weight: 97.2 kg

DRUGS (4)
  1. DOPAMINE HYDROCHLORIDE [Suspect]
     Dosage: INTRAVENOUS
     Route: 042
  2. AMIODARONE HYDROCHLORIDE [Concomitant]
  3. PHENYLEPHRINE [Concomitant]
  4. GLUCOSE [Concomitant]

REACTIONS (2)
  - INJECTION SITE INFLAMMATION [None]
  - INJECTION SITE PHLEBITIS [None]
